FAERS Safety Report 7647878-6 (Version None)
Quarter: 2011Q3

REPORT INFORMATION
  Report Type: 
  Country: None (occurrence: None)
  Receive Date: 20110801
  Receipt Date: 20110510
  Transmission Date: 20111222
  Serious: No
  Sender: FDA-Public Use
  Company Number: US-ABBOTT-11P-163-0804468-00

PATIENT
  Sex: Female
  Weight: 57.727 kg

DRUGS (5)
  1. PANCREATIN TRIPLE STRENGTH CAP [Suspect]
     Indication: GASTROINTESTINAL DISORDER
     Dosage: DAILY DOSE:  UNKNOWN, AS USED: 24000 UNIT SOL, UNIT DOSE: 24000
     Route: 065
     Dates: start: 20110415, end: 20110415
  2. LISINOPRIL [Concomitant]
     Indication: HYPERTENSION
     Dosage: DAILY DOSE:  UNKNOWN
     Route: 065
  3. PREDNISONE [Concomitant]
     Indication: DYSPNOEA
     Dosage: DAILY DOSE:  UNKNOWN
     Route: 065
  4. LORAZEPAM [Concomitant]
     Indication: ANXIETY
     Dosage: DAILY DOSE:  UNKNOWN, FREQUENCY: AS NEEDED
     Route: 065
  5. POTASSIUM CHLORIDE [Concomitant]
     Indication: MINERAL SUPPLEMENTATION
     Dosage: DAILY DOSE:  UNKNOWN
     Route: 065

REACTIONS (2)
  - DIARRHOEA [None]
  - NAUSEA [None]
